FAERS Safety Report 19042561 (Version 1)
Quarter: 2021Q1

REPORT INFORMATION
  Report Type: Report from Study
  Country: US (occurrence: US)
  Receive Date: 20210323
  Receipt Date: 20210323
  Transmission Date: 20210420
  Serious: Yes (Life-Threatening, Hospitalization, Other)
  Sender: FDA-Public Use
  Company Number: US-TAKEDA-US201902676

PATIENT
  Age: 69 Year
  Sex: Female
  Weight: 57 kg

DRUGS (24)
  1. TEDUGLUTIDE [Suspect]
     Active Substance: TEDUGLUTIDE
     Dosage: 2.5 MILLIGRAM (0.04 MG/KG DAILY DOSE), 7 DOSES PER WEEK
     Route: 065
     Dates: start: 20141230, end: 20150101
  2. TEDUGLUTIDE [Suspect]
     Active Substance: TEDUGLUTIDE
     Dosage: 2.5 MILLIGRAM (0.04 MG/KG DAILY DOSE), 4 DOSES PER WEEK
     Route: 065
     Dates: start: 20150116, end: 20150204
  3. TEDUGLUTIDE [Suspect]
     Active Substance: TEDUGLUTIDE
     Indication: SHORT-BOWEL SYNDROME
     Dosage: 2.5 MILLIGRAM (0.04 MG/KG DAILY DOSE), 7 DOSES PER WEEK
     Route: 065
     Dates: start: 20140401, end: 20140930
  4. TEDUGLUTIDE [Suspect]
     Active Substance: TEDUGLUTIDE
     Dosage: 2.5 MILLIGRAM (0.04 MG/KG DAILY DOSE), 4 DOSES PER WEEK
     Route: 065
     Dates: start: 20140930, end: 20141230
  5. TEDUGLUTIDE [Suspect]
     Active Substance: TEDUGLUTIDE
     Dosage: 2.5 MILLIGRAM (0.04 MG/KG DAILY DOSE), 4 DOSES PER WEEK
     Route: 065
     Dates: start: 20140930, end: 20141230
  6. TEDUGLUTIDE [Suspect]
     Active Substance: TEDUGLUTIDE
     Indication: SHORT-BOWEL SYNDROME
     Dosage: 2.5 MILLIGRAM (0.04 MG/KG DAILY DOSE), 7 DOSES PER WEEK
     Route: 065
     Dates: start: 20140401, end: 20140930
  7. TEDUGLUTIDE [Suspect]
     Active Substance: TEDUGLUTIDE
     Dosage: 2.5 MILLIGRAM (0.04 MG/KG DAILY DOSE), 4 DOSES PER WEEK
     Route: 065
     Dates: start: 20140930, end: 20141230
  8. TEDUGLUTIDE [Suspect]
     Active Substance: TEDUGLUTIDE
     Dosage: 2.5 MILLIGRAM (0.04 MG/KG DAILY DOSE), 4 DOSES PER WEEK
     Route: 065
     Dates: start: 20150116, end: 20150204
  9. TEDUGLUTIDE [Suspect]
     Active Substance: TEDUGLUTIDE
     Dosage: 2.5 MILLIGRAM (0.04 MG/KG DAILY DOSE), 7 DOSES PER WEEK
     Route: 065
     Dates: start: 20141230, end: 20150101
  10. TEDUGLUTIDE [Suspect]
     Active Substance: TEDUGLUTIDE
     Indication: SHORT-BOWEL SYNDROME
     Dosage: 2.5 MILLIGRAM (0.04 MG/KG DAILY DOSE), 7 DOSES PER WEEK
     Route: 065
     Dates: start: 20140401, end: 20140930
  11. TEDUGLUTIDE [Suspect]
     Active Substance: TEDUGLUTIDE
     Dosage: 2.5 MILLIGRAM (0.04 MG/KG DAILY DOSE), 7 DOSES PER WEEK
     Route: 065
     Dates: start: 20150106, end: 20150116
  12. TEDUGLUTIDE [Suspect]
     Active Substance: TEDUGLUTIDE
     Dosage: 2.5 MILLIGRAM (0.04 MG/KG DAILY DOSE), 7 DOSES PER WEEK
     Route: 065
     Dates: start: 20150106, end: 20150116
  13. TEDUGLUTIDE [Suspect]
     Active Substance: TEDUGLUTIDE
     Dosage: 2.5 MILLIGRAM (0.04 MG/KG DAILY DOSE), 7 DOSES PER WEEK
     Route: 065
     Dates: start: 20150106, end: 20150116
  14. TEDUGLUTIDE [Suspect]
     Active Substance: TEDUGLUTIDE
     Dosage: 2.5 MILLIGRAM (0.04 MG/KG DAILY DOSE), 4 DOSES PER WEEK
     Route: 065
     Dates: start: 20150116, end: 20150204
  15. ASPIRIN. [Concomitant]
     Active Substance: ASPIRIN
     Indication: HYPERTENSION
  16. TEDUGLUTIDE [Suspect]
     Active Substance: TEDUGLUTIDE
     Indication: SHORT-BOWEL SYNDROME
     Dosage: 2.5 MILLIGRAM (0.04 MG/KG DAILY DOSE), 7 DOSES PER WEEK
     Route: 065
     Dates: start: 20140401, end: 20140930
  17. TEDUGLUTIDE [Suspect]
     Active Substance: TEDUGLUTIDE
     Dosage: 2.5 MILLIGRAM (0.04 MG/KG DAILY DOSE), 4 DOSES PER WEEK
     Route: 065
     Dates: start: 20140930, end: 20141230
  18. TEDUGLUTIDE [Suspect]
     Active Substance: TEDUGLUTIDE
     Dosage: 2.5 MILLIGRAM (0.04 MG/KG DAILY DOSE), 7 DOSES PER WEEK
     Route: 065
     Dates: start: 20141230, end: 20150101
  19. TEDUGLUTIDE [Suspect]
     Active Substance: TEDUGLUTIDE
     Dosage: 2.5 MILLIGRAM (0.04 MG/KG DAILY DOSE), 7 DOSES PER WEEK
     Route: 065
     Dates: start: 20141230, end: 20150101
  20. TEDUGLUTIDE [Suspect]
     Active Substance: TEDUGLUTIDE
     Dosage: 2.5 MILLIGRAM (0.04 MG/KG DAILY DOSE), 4 DOSES PER WEEK
     Route: 065
     Dates: start: 20150116, end: 20150204
  21. ALBUTEROL. [Concomitant]
     Active Substance: ALBUTEROL
     Indication: DYSPNOEA
  22. OXYCODONE HYDROCHLORIDE. [Concomitant]
     Active Substance: OXYCODONE HYDROCHLORIDE
     Indication: SMALL INTESTINAL OBSTRUCTION
  23. TEDUGLUTIDE [Suspect]
     Active Substance: TEDUGLUTIDE
     Dosage: 2.5 MILLIGRAM (0.04 MG/KG DAILY DOSE), 7 DOSES PER WEEK
     Route: 065
     Dates: start: 20150106, end: 20150116
  24. MELATONIN [Concomitant]
     Active Substance: MELATONIN
     Indication: SEDATIVE THERAPY

REACTIONS (2)
  - Sepsis [Recovered/Resolved]
  - Respiratory failure [Recovered/Resolved]

NARRATIVE: CASE EVENT DATE: 20170605
